FAERS Safety Report 11368545 (Version 1)
Quarter: 2015Q3

REPORT INFORMATION
  Report Type: Report from Study
  Country: US (occurrence: US)
  Receive Date: 20150812
  Receipt Date: 20150812
  Transmission Date: 20151125
  Serious: No
  Sender: FDA-Public Use
  Company Number: US-AMGEN-USASL2015078956

PATIENT
  Age: 75 Year
  Sex: Female

DRUGS (4)
  1. ENBREL [Suspect]
     Active Substance: ETANERCEPT
     Indication: PSORIASIS
     Dosage: 50 MG, UNK
     Route: 065
     Dates: start: 200911
  2. FLONASE                            /00908302/ [Concomitant]
     Indication: SEASONAL ALLERGY
  3. CLARITIN [Concomitant]
     Active Substance: LORATADINE
     Indication: SEASONAL ALLERGY
     Dosage: UNK
  4. ENBREL [Suspect]
     Active Substance: ETANERCEPT
     Indication: RHEUMATOID ARTHRITIS

REACTIONS (2)
  - Cough [Unknown]
  - Hypersensitivity [Unknown]
